FAERS Safety Report 5288257-9 (Version None)
Quarter: 2007Q2

REPORT INFORMATION
  Report Type: 
  Country: None (occurrence: None)
  Receive Date: 20070403
  Receipt Date: 20070403
  Transmission Date: 20071010
  Serious: Yes (Death)
  Sender: FDA-Public Use
  Company Number: None

PATIENT
  Age: 63 Year
  Sex: Female
  Weight: 63.5036 kg

DRUGS (1)
  1. FENTANYL [Suspect]
     Indication: FIBROMYALGIA
     Dosage: 100MCG  EVERY 3 DAYS  TRANSDERMAL
     Route: 062
     Dates: start: 20020501, end: 20060529

REACTIONS (1)
  - DRUG TOXICITY [None]
